FAERS Safety Report 6252093-7 (Version None)
Quarter: 2009Q2

REPORT INFORMATION
  Report Type: 
  Country: None (occurrence: None)
  Receive Date: 20090630
  Receipt Date: 20050313
  Transmission Date: 20091009
  Serious: Yes (Death)
  Sender: FDA-Public Use
  Company Number: US-ROCHE-638950

PATIENT
  Sex: Male

DRUGS (14)
  1. ENFUVIRTIDE [Suspect]
     Route: 065
     Dates: start: 20040607, end: 20060517
  2. KALETRA [Concomitant]
     Dates: start: 20040707, end: 20041221
  3. LEXIVA [Concomitant]
     Dates: start: 20040707, end: 20050128
  4. VIDEX EC [Concomitant]
     Dates: start: 20040707, end: 20050128
  5. APTIVUS [Concomitant]
     Dates: start: 20050128, end: 20060517
  6. NORVIR [Concomitant]
     Dates: start: 20050128, end: 20060517
  7. ZIAGEN [Concomitant]
     Dates: start: 20050128, end: 20060517
  8. VIRAMUNE [Concomitant]
     Dates: start: 20060321, end: 20060517
  9. BACTRIM DS [Concomitant]
     Dates: start: 19991026, end: 20060711
  10. DIFLUCAN [Concomitant]
     Dates: start: 20030131, end: 20060711
  11. AMOXICILLIN [Concomitant]
     Dates: start: 20040701, end: 20040711
  12. LEVAQUIN [Concomitant]
     Dates: start: 20041101, end: 20041111
  13. MOXIFLOXACIN HYDROCHLORIDE [Concomitant]
     Dates: start: 20041118, end: 20041128
  14. DOXYCYCLINE [Concomitant]
     Dates: start: 20050211, end: 20050221

REACTIONS (1)
  - DEATH [None]
